FAERS Safety Report 6677974-1 (Version None)
Quarter: 2010Q2

REPORT INFORMATION
  Report Type: 
  Country: None (occurrence: None)
  Receive Date: 20100412
  Receipt Date: 20100331
  Transmission Date: 20101027
  Serious: Yes (Death, Life-Threatening, Hospitalization, Other)
  Sender: FDA-Public Use
  Company Number: DE-ELI_LILLY_AND_COMPANY-DE201004000059

PATIENT
  Sex: Female
  Weight: 62 kg

DRUGS (18)
  1. CYMBALTA [Suspect]
     Indication: POLYNEUROPATHY
     Dosage: 60 MG, UNKNOWN
     Route: 048
     Dates: start: 20090430
  2. ASPIRIN [Concomitant]
     Dosage: 100 D/F, DAILY (1/D)
     Route: 065
  3. TARGIN [Concomitant]
     Dosage: 10 D/F, 2/D
     Route: 065
  4. MADOPAR [Concomitant]
     Dosage: UNK, DAILY (1/D) (100/25)
     Route: 065
  5. NEURO-B FORTE NEU [Concomitant]
     Dosage: UNK, DAILY (1/D)
     Route: 065
  6. ALDACTONE [Concomitant]
     Dosage: 25 D/F, DAILY (1/D)
     Route: 065
  7. LOCOL [Concomitant]
     Dosage: 80 D/F, DAILY (1/D)
     Route: 065
  8. LEVOTHYROXINE SODIUM [Concomitant]
     Dosage: UNK, UNKNOWN
     Route: 065
  9. METOHEXAL [Concomitant]
     Dosage: 100 D/F, 2/D
     Route: 065
  10. DIGITOXIN TAB [Concomitant]
     Dosage: UNK, DAILY (1/D)
     Route: 065
  11. DIPYRONE TAB [Concomitant]
     Dosage: 20 D/F, 3/D
     Route: 065
  12. PANTOPRAZOLE SODIUM [Concomitant]
     Dosage: 40 D/F, DAILY (1/D)
     Route: 065
  13. VOLTAREN                                /SCH/ [Concomitant]
     Dosage: 40 D/F, DAILY (1/D)
     Route: 065
  14. TORSEMIDE [Concomitant]
     Dosage: 10 D/F, DAILY (1/D)
     Route: 065
  15. DELIX PLUS [Concomitant]
     Dosage: UNK, DAILY (1/D)
     Route: 065
  16. INSULIN [Concomitant]
     Dosage: 10 IU, UNKNOWN
     Route: 065
  17. INSULIN [Concomitant]
     Dosage: 4 IU, UNKNOWN
     Route: 065
  18. DIGITALIS TAB [Concomitant]
     Dosage: UNK, UNKNOWN
     Route: 065

REACTIONS (13)
  - ABDOMINAL DISTENSION [None]
  - AORTIC VALVE SCLEROSIS [None]
  - AORTIC VALVE STENOSIS [None]
  - ATRIAL FIBRILLATION [None]
  - CARDIAC ARREST [None]
  - CARDIAC FAILURE [None]
  - CARDIAC FLUTTER [None]
  - DYSPNOEA [None]
  - MITRAL VALVE DISEASE [None]
  - NAUSEA [None]
  - OEDEMA PERIPHERAL [None]
  - PULMONARY HYPERTENSION [None]
  - TRICUSPID VALVE DISEASE [None]
